FAERS Safety Report 5565370-X (Version None)
Quarter: 2007Q4

REPORT INFORMATION
  Report Type: 
  Country: None (occurrence: None)
  Receive Date: 20071218
  Receipt Date: 20040804
  Transmission Date: 20080405
  Serious: Yes (Death, Life-Threatening)
  Sender: FDA-Public Use
  Company Number: JP-ROCHE-376692

PATIENT
  Age: 54 Year
  Sex: Female

DRUGS (4)
  1. ROCEPHIN [Suspect]
     Indication: DIARRHOEA
     Route: 042
     Dates: start: 20040507, end: 20040508
  2. CRAVIT [Concomitant]
     Dates: start: 20040507
  3. LOPERAMIDE HYDROCHLORIDE [Concomitant]
  4. INSULIN [Concomitant]
     Dosage: 20 IU MORNING 30 IU EVENING
     Route: 058

REACTIONS (2)
  - MULTI-ORGAN FAILURE [None]
  - PATHOGEN RESISTANCE [None]
